FAERS Safety Report 6985006-0 (Version None)
Quarter: 2010Q3

REPORT INFORMATION
  Report Type: 
  Country: None (occurrence: None)
  Receive Date: 20100913
  Receipt Date: 20100828
  Transmission Date: 20110219
  Serious: Yes (Hospitalization, Other)
  Sender: FDA-Public Use
  Company Number: 2010AP001860

PATIENT
  Age: 72 Year
  Sex: Female

DRUGS (3)
  1. LEFLUNOMIDE [Suspect]
     Indication: RHEUMATOID ARTHRITIS
  2. FLUTICASONE PROPIONATE [Suspect]
     Indication: CHRONIC OBSTRUCTIVE PULMONARY DISEASE
     Dosage: 1 DF; BID; INH
     Route: 055
  3. PREDNISONE [Suspect]
     Dosage: PO
     Route: 048

REACTIONS (3)
  - ASPERGILLOSIS [None]
  - NO THERAPEUTIC RESPONSE [None]
  - TRACHEOBRONCHITIS [None]
